FAERS Safety Report 4398426-8 (Version None)
Quarter: 2004Q3

REPORT INFORMATION
  Report Type: 
  Country: None (occurrence: None)
  Receive Date: 20040715
  Receipt Date: 20030822
  Transmission Date: 20050211
  Serious: Yes (Life-Threatening, Hospitalization, Other)
  Sender: FDA-Public Use
  Company Number: FR-BRISTOL-MYERS SQUIBB COMPANY-12363941

PATIENT
  Age: 43 Year
  Sex: Female
  Weight: 74 kg

DRUGS (4)
  1. SUSTIVA [Suspect]
     Indication: HIV INFECTION
     Route: 048
     Dates: start: 20030412, end: 20030728
  2. VIDEX [Suspect]
     Indication: HIV INFECTION
     Route: 048
     Dates: start: 20030412, end: 20030728
  3. EPIVIR [Suspect]
     Indication: HIV INFECTION
     Route: 048
     Dates: start: 20030412, end: 20030728
  4. VIREAD [Suspect]
     Indication: HIV INFECTION
     Route: 048
     Dates: start: 20030412, end: 20030728

REACTIONS (8)
  - AGGRESSION [None]
  - ASCITES [None]
  - HEPATIC NECROSIS [None]
  - HEPATITIS A [None]
  - JAUNDICE [None]
  - PERITONEAL HAEMATOMA [None]
  - SOMNOLENCE [None]
  - VOMITING [None]
